FAERS Safety Report 8829963 (Version 1)
Quarter: 2012Q4

REPORT INFORMATION
  Report Type: 
  Country: BR (occurrence: BR)
  Receive Date: 20121008
  Receipt Date: 20121008
  Transmission Date: 20130627
  Serious: Yes (Hospitalization, Other)
  Sender: FDA-Public Use
  Company Number: PHHO2012BR009856

PATIENT
  Age: 58 Year
  Sex: Female
  Weight: 95.7 kg

DRUGS (4)
  1. ENALAPRIL [Suspect]
     Indication: CARDIAC FAILURE CHRONIC
     Dosage: No treatment
  2. BLINDED LCZ696 [Suspect]
     Indication: CARDIAC FAILURE CHRONIC
     Dosage: No treatment
  3. BLINDED NO TREATMENT RECEIVED [Suspect]
     Indication: CARDIAC FAILURE CHRONIC
     Dosage: No treatment
  4. UNSPECIFIED INGREDIENT [Suspect]
     Indication: CARDIAC FAILURE CHRONIC
     Dosage: UNK
     Route: 048
     Dates: start: 20120621

REACTIONS (3)
  - Angina pectoris [Not Recovered/Not Resolved]
  - Non-cardiac chest pain [Recovered/Resolved]
  - Renal neoplasm [Recovered/Resolved]
